FAERS Safety Report 10465892 (Version 1)
Quarter: 2014Q3

REPORT INFORMATION
  Report Type: Spontaneous
  Country: US (occurrence: US)
  Receive Date: 20140922
  Receipt Date: 20140922
  Transmission Date: 20150326
  Serious: Yes (Hospitalization)
  Sender: FDA-Public Use
  Company Number: US-AUROBINDO-AUR-APL-2014-09851

PATIENT
  Age: 31 Year
  Sex: Female

DRUGS (6)
  1. CIPROFLOXACIN. [Suspect]
     Active Substance: CIPROFLOXACIN
     Indication: PRODUCT USED FOR UNKNOWN INDICATION
     Dosage: 500 MG, UNK
     Route: 048
  2. TRAZODONE [Suspect]
     Active Substance: TRAZODONE HYDROCHLORIDE
     Indication: PRODUCT USED FOR UNKNOWN INDICATION
     Dosage: 200 MG, AT BED TIME
     Route: 048
  3. HALOPERIDOL. [Suspect]
     Active Substance: HALOPERIDOL
     Dosage: 2MG EVERY 6 HOURS AS NEEDED
     Route: 042
  4. HALOPERIDOL. [Suspect]
     Active Substance: HALOPERIDOL
     Indication: PRODUCT USED FOR UNKNOWN INDICATION
     Dosage: 200 MG, UNK
     Route: 030
  5. ZIPRASIDONE [Suspect]
     Active Substance: ZIPRASIDONE
     Indication: PRODUCT USED FOR UNKNOWN INDICATION
     Dosage: 80MG EVERY 12 HOURS
     Route: 048
  6. FUROSEMIDE. [Suspect]
     Active Substance: FUROSEMIDE
     Indication: PRODUCT USED FOR UNKNOWN INDICATION
     Dosage: 40 MG, DAILY
     Route: 042

REACTIONS (12)
  - Hepatomegaly [Unknown]
  - Hypomagnesaemia [Unknown]
  - Mental status changes [Unknown]
  - Pulmonary hypertension [Unknown]
  - Off label use [Unknown]
  - Torsade de pointes [Recovered/Resolved]
  - Dyspnoea [Unknown]
  - Agitation [Unknown]
  - Respiratory acidosis [Unknown]
  - Electrocardiogram QT prolonged [Recovered/Resolved]
  - Cardiac failure congestive [Unknown]
  - Sinus tachycardia [Recovered/Resolved]
